FAERS Safety Report 14942784 (Version 2)
Quarter: 2019Q4

REPORT INFORMATION
  Report Type: Report from Study
  Country: DE (occurrence: DE)
  Receive Date: 20180528
  Receipt Date: 20191014
  Transmission Date: 20200122
  Serious: Yes (Hospitalization)
  Sender: FDA-Public Use
  Company Number: DE-ROCHE-2128614

PATIENT
  Age: 41 Year
  Sex: Male

DRUGS (7)
  1. MIRTAZAPINE. [Concomitant]
     Active Substance: MIRTAZAPINE
     Indication: PRODUCT USED FOR UNKNOWN INDICATION
     Dosage: 45 MG, AT NIGHT
     Route: 065
  2. BACLOFEN. [Concomitant]
     Active Substance: BACLOFEN
     Indication: PRODUCT USED FOR UNKNOWN INDICATION
     Dosage: 25 MG, TID
     Route: 065
  3. GILENYA [Suspect]
     Active Substance: FINGOLIMOD HYDROCHLORIDE
     Indication: MULTIPLE SCLEROSIS
     Dosage: 0.5 MG, QD
     Route: 048
     Dates: start: 20140224, end: 20151210
  4. PANTOPRAZOLE [Concomitant]
     Active Substance: PANTOPRAZOLE
     Indication: PRODUCT USED FOR UNKNOWN INDICATION
     Dosage: 20 MG, IN MORNING
     Route: 065
  5. RITUXIMAB. [Suspect]
     Active Substance: RITUXIMAB
     Dosage: 1000 MG, UNK
     Route: 065
  6. PANTOPRAZOLE [Concomitant]
     Active Substance: PANTOPRAZOLE
     Dosage: 10-0-2.5 MG (REDUCTION 2.5 MG PER WEEK)UNK
     Route: 065
  7. RITUXIMAB. [Suspect]
     Active Substance: RITUXIMAB
     Indication: PRODUCT USED FOR UNKNOWN INDICATION
     Dosage: 1000 MG, UNK
     Route: 065
     Dates: start: 20160203

REACTIONS (21)
  - Groin pain [Not Recovered/Not Resolved]
  - Psoriasis [Unknown]
  - Arthritis [Recovering/Resolving]
  - Myalgia [Unknown]
  - Psoriatic arthropathy [Recovering/Resolving]
  - Musculoskeletal stiffness [Unknown]
  - Tinea cruris [Unknown]
  - Transaminases increased [Unknown]
  - Erythema [Not Recovered/Not Resolved]
  - Sepsis [Recovered/Resolved]
  - Hepatic steatosis [Unknown]
  - Joint swelling [Unknown]
  - Gastroenteritis [Unknown]
  - General physical health deterioration [Unknown]
  - Pain [Unknown]
  - Arthralgia [Unknown]
  - Splenomegaly [Unknown]
  - Inflammation [Recovering/Resolving]
  - Arthritis infective [Unknown]
  - Genital candidiasis [Unknown]
  - Muscle spasms [Unknown]

NARRATIVE: CASE EVENT DATE: 20160527
